FAERS Safety Report 13415224 (Version 2)
Quarter: 2017Q2

REPORT INFORMATION
  Report Type: Report from Study
  Country: CZ (occurrence: CZ)
  Receive Date: 20170407
  Receipt Date: 20170412
  Transmission Date: 20170830
  Serious: Yes (Other)
  Sender: FDA-Public Use
  Company Number: CZ-AMGEN-CZECT2015006466

PATIENT
  Age: 67 Year
  Sex: Male
  Weight: 80.7 kg

DRUGS (17)
  1. AMG 416 [Suspect]
     Active Substance: ETELCALCETIDE
     Dosage: 2.5 MG, UNK
     Route: 042
     Dates: start: 20160712
  2. OMEPRAZOL [Concomitant]
     Active Substance: OMEPRAZOLE
     Dosage: 20 MG, QD
     Route: 048
     Dates: start: 20110726
  3. CELASKON [Concomitant]
     Indication: VITAMIN SUPPLEMENTATION
     Dosage: 100 MG, QD
     Route: 048
     Dates: start: 20050215
  4. VIGANTOL [Concomitant]
     Active Substance: CHOLECALCIFEROL
     Indication: VITAMIN SUPPLEMENTATION
     Dosage: 5000 IU, Q2WK (TWICE A MONTH)
     Route: 048
     Dates: start: 20130208
  5. AMG 416 [Suspect]
     Active Substance: ETELCALCETIDE
     Dosage: 7.5 MG, UNK
     Route: 042
     Dates: start: 20150108
  6. PENTOMER [Concomitant]
     Indication: PERIPHERAL ARTERIAL OCCLUSIVE DISEASE
     Dosage: 400 MG, BID
     Route: 048
     Dates: start: 20130507
  7. ACETYLSALICYLIC ACID [Concomitant]
     Active Substance: ASPIRIN
     Indication: PERIPHERAL VASCULAR DISORDER
     Dosage: 100 MG, QD
     Route: 048
     Dates: start: 20050311
  8. FERROSOL [Concomitant]
     Indication: MINERAL SUPPLEMENTATION
     Dosage: 62.5 MG, QMO
     Route: 042
     Dates: start: 20130122
  9. ARANESP [Concomitant]
     Active Substance: DARBEPOETIN ALFA
     Indication: ANAEMIA
     Dosage: 20 MUG, Q2WK (TWICE A MONTH)
     Route: 042
     Dates: start: 20140429
  10. VITAMIN B COMPLEX [Concomitant]
     Active Substance: CYANOCOBALAMIN\DEXPANTHENOL\NIACINAMIDE\PYRIDOXINE HYDROCHLORIDE\RIBOFLAVIN 5^-PHOSPHATE SODIUM\THIAMINE HYDROCHLORIDE\VITAMIN B COMPLEX
     Indication: VITAMIN SUPPLEMENTATION
     Dosage: 1 DF, QD
     Route: 048
     Dates: start: 20050215
  11. TORVACARD [Concomitant]
     Active Substance: ATORVASTATIN CALCIUM
     Indication: PERIPHERAL ARTERIAL OCCLUSIVE DISEASE
  12. ZEMPLAR [Concomitant]
     Active Substance: PARICALCITOL
     Indication: HYPERPARATHYROIDISM SECONDARY
     Dosage: 5 MUG, QD
     Route: 042
     Dates: start: 20120828
  13. AMG 416 [Suspect]
     Active Substance: ETELCALCETIDE
     Indication: HYPERPARATHYROIDISM SECONDARY
     Dosage: 10 MG, 3 TIMES/WK
     Route: 042
     Dates: start: 20141218
  14. CALCIUM [Concomitant]
     Active Substance: CALCIUM
     Indication: PROPHYLAXIS
     Dosage: 250 MG, QD
     Route: 048
     Dates: start: 20140111
  15. GERATAM [Concomitant]
     Indication: SUPPORTIVE CARE
     Dosage: 800 MG, QD
     Route: 048
     Dates: start: 20130401
  16. TORVACARD [Concomitant]
     Active Substance: ATORVASTATIN CALCIUM
     Indication: HYPERCHOLESTEROLAEMIA
     Dosage: 5 MG, QD
     Route: 048
     Dates: start: 20130813
  17. RENVELA [Concomitant]
     Active Substance: SEVELAMER CARBONATE
     Indication: HYPERPHOSPHATAEMIA
     Dosage: 800 MG, 3 TIMES/WK
     Route: 048
     Dates: start: 20140610

REACTIONS (1)
  - Liver injury [Recovered/Resolved]

NARRATIVE: CASE EVENT DATE: 20150106
